FAERS Safety Report 9745917 (Version 5)
Quarter: 2014Q1

REPORT INFORMATION
  Report Type: Report from Study
  Country: US (occurrence: US)
  Receive Date: 20131211
  Receipt Date: 20140306
  Transmission Date: 20141002
  Serious: Yes (Hospitalization, Other)
  Sender: FDA-Public Use
  Company Number: US-BAXTER-2013BAX048398

PATIENT
  Age: 54 Year
  Sex: Female
  Weight: 136.2 kg

DRUGS (3)
  1. GAMMAGARD LIQUID [Suspect]
     Indication: IMMUNODEFICIENCY COMMON VARIABLE
     Route: 058
  2. VIVAGLOBIN [Concomitant]
     Indication: IMMUNODEFICIENCY COMMON VARIABLE
     Route: 065
  3. HIZENTRA [Concomitant]
     Indication: IMMUNODEFICIENCY COMMON VARIABLE
     Route: 065
     Dates: start: 2011

REACTIONS (20)
  - Eye swelling [Recovered/Resolved]
  - Dysuria [Recovering/Resolving]
  - Swelling [Unknown]
  - Abasia [Unknown]
  - Constipation [Recovered/Resolved]
  - Back pain [Not Recovered/Not Resolved]
  - Decreased activity [Unknown]
  - Malaise [Not Recovered/Not Resolved]
  - Body temperature increased [Not Recovered/Not Resolved]
  - Chills [Unknown]
  - Headache [Unknown]
  - Dyspnoea [Unknown]
  - Fatigue [Unknown]
  - Decreased appetite [Not Recovered/Not Resolved]
  - Rectal haemorrhage [Unknown]
  - Blood pressure increased [Recovering/Resolving]
  - Haematochezia [Recovered/Resolved]
  - Haemorrhoids [Unknown]
  - Dysuria [Not Recovered/Not Resolved]
  - Large intestine polyp [Unknown]
